FAERS Safety Report 11753674 (Version 5)
Quarter: 2020Q1

REPORT INFORMATION
  Report Type: Spontaneous
  Country: US (occurrence: US)
  Receive Date: 20151119
  Receipt Date: 20200224
  Transmission Date: 20200409
  Serious: No
  Sender: FDA-Public Use
  Company Number: US-PFIZER INC-2015382124

PATIENT
  Age: 52 Year
  Sex: Female
  Weight: 57 kg

DRUGS (16)
  1. LYRICA [Suspect]
     Active Substance: PREGABALIN
     Dosage: 200 MG, DAILY
     Dates: start: 201512
  2. ASPIRIN. [Concomitant]
     Active Substance: ASPIRIN
     Dosage: 81 MG, DAILY
     Route: 048
     Dates: start: 20160106
  3. NISOLDIPINE. [Concomitant]
     Active Substance: NISOLDIPINE
     Dosage: 8.5 MG, 1X/DAY
     Route: 048
     Dates: start: 20160106
  4. HYDROCODONE/ACETAMINOPHEN [Concomitant]
     Active Substance: ACETAMINOPHEN\HYDROCODONE
     Indication: PAIN
     Dosage: 1 DF, AS NEEDED (0-325 MG, EVERY 4 HOURS)
     Route: 048
     Dates: start: 20111102
  5. PROMETHAZINE HCL [Concomitant]
     Active Substance: PROMETHAZINE HYDROCHLORIDE
     Indication: NAUSEA
     Dosage: 25 MG, AS NEEDED (EVERY 6 HOURS)
     Route: 048
     Dates: start: 20140502
  6. TRIAMCINOLONE ACETONIDE. [Concomitant]
     Active Substance: TRIAMCINOLONE ACETONIDE
     Dosage: 0.1 %, 2X/DAY (MORNING AND IN THE EVENING)
     Dates: start: 20120709
  7. LYRICA [Suspect]
     Active Substance: PREGABALIN
     Indication: FIBROMYALGIA
     Dosage: 200 MG, 1X/DAY (AT NIGHT)
  8. CELEBREX [Concomitant]
     Active Substance: CELECOXIB
     Dosage: 200 MG, 2X/DAY
     Route: 048
     Dates: start: 20130909
  9. CYMBALTA [Concomitant]
     Active Substance: DULOXETINE HYDROCHLORIDE
     Dosage: 1 DF, 1X/DAY
     Route: 048
  10. DULOXETINE HCL [Concomitant]
     Active Substance: DULOXETINE HYDROCHLORIDE
     Dosage: 60 MG, UNK
     Route: 048
     Dates: start: 20121030
  11. MULTI VITAMIN + MINERAL [Concomitant]
     Active Substance: MINERALS\VITAMINS
     Dosage: UNK
     Route: 048
  12. ARTHRICREAM [Concomitant]
     Active Substance: TROLAMINE SALICYLATE
     Dosage: 10 %, UNK
  13. ASPIRIN ADULT [Concomitant]
     Dosage: 81 MG, 1X/DAY
     Route: 048
     Dates: start: 20110708
  14. LYRICA [Suspect]
     Active Substance: PREGABALIN
     Dosage: 150 MG, 2X/DAY
     Route: 048
     Dates: end: 201511
  15. ALPRAZOLAM. [Concomitant]
     Active Substance: ALPRAZOLAM
     Dosage: 0.5 MG, AS NEEDED (EVERY 6 TO 8 HOURS)
     Route: 048
     Dates: start: 20110920
  16. PROAIR HFA [Concomitant]
     Active Substance: ALBUTEROL SULFATE
     Dosage: UNK, AS NEEDED (, INHALE 1-2 PUFFS EVERY 4-6 HOURS AS NEED AND AS DIRECTED)
     Dates: start: 20120709

REACTIONS (15)
  - Intentional product misuse [Unknown]
  - Post-traumatic stress disorder [Recovered/Resolved]
  - Weight fluctuation [Unknown]
  - Product dose omission [Unknown]
  - Expired product administered [Unknown]
  - Condition aggravated [Recovered/Resolved]
  - Crying [Recovered/Resolved]
  - Arterial spasm [Recovered/Resolved]
  - Nightmare [Recovered/Resolved]
  - Malaise [Recovered/Resolved]
  - Hypoaesthesia [Recovered/Resolved]
  - Withdrawal syndrome [Recovered/Resolved]
  - Muscle spasms [Recovered/Resolved]
  - Insomnia [Recovered/Resolved]
  - Hypoacusis [Unknown]

NARRATIVE: CASE EVENT DATE: 201511
